FAERS Safety Report 20836770 (Version 2)
Quarter: 2022Q3

REPORT INFORMATION
  Report Type: Spontaneous
  Country: CA (occurrence: CA)
  Receive Date: 20220517
  Receipt Date: 20220712
  Transmission Date: 20221027
  Serious: No
  Sender: FDA-Public Use
  Company Number: CA-CELLTRION INC.-2022CA005210

PATIENT

DRUGS (1)
  1. INFLECTRA [Suspect]
     Active Substance: INFLIXIMAB-DYYB
     Indication: Crohn^s disease
     Dosage: 400 MG, WEEK 0, 2, 6 THEN EVERY 8 WEEKS/400 MG, WEEK 0, 2, 6 THEN EVERY 8 WEEKS (NOT YET STARTED)
     Route: 042

REACTIONS (2)
  - Off label use [Unknown]
  - Intentional product use issue [Unknown]
